FAERS Safety Report 14336509 (Version 8)
Quarter: 2019Q2

REPORT INFORMATION
  Report Type: Report from Study
  Country: None (occurrence: DE)
  Receive Date: 20171229
  Receipt Date: 20190618
  Transmission Date: 20190711
  Serious: Yes (Other)
  Sender: FDA-Public Use
  Company Number: DE-ABBVIE-17S-062-2201777-00

PATIENT
  Age: 30 Year
  Sex: Male
  Weight: 76 kg

DRUGS (21)
  1. METAMIZOLE [Concomitant]
     Active Substance: METAMIZOLE
     Indication: PRODUCT USED FOR UNKNOWN INDICATION
     Route: 048
     Dates: start: 20121221
  2. PEGINTERFERON ALFA-2A. [Suspect]
     Active Substance: PEGINTERFERON ALFA-2A
     Indication: CHRONIC HEPATITIS C
     Dosage: 180 UG, Q1WK
     Route: 058
     Dates: start: 20120524, end: 20130425
  3. COPEGUS [Suspect]
     Active Substance: RIBAVIRIN
     Indication: CHRONIC HEPATITIS C
     Dosage: CUMULATIVE DOSE TO FIRST REACTION: 103473.69 MG?1000 MG, QD
     Route: 048
     Dates: start: 20120524, end: 20120802
  4. ACC AKUT [Concomitant]
     Active Substance: ACETYLCYSTEINE
     Dosage: 600 MG, UNK
  5. CITALOPRAM [Concomitant]
     Active Substance: CITALOPRAM HYDROBROMIDE
     Indication: DRUG DEPENDENCE
     Dosage: 40 MG, UNK
     Route: 065
     Dates: start: 20120621, end: 20130601
  6. BETAGALEN [Concomitant]
     Indication: HEPATITIS C
     Dosage: UNK
     Route: 065
     Dates: start: 20120605
  7. CITALOPRAM [Concomitant]
     Active Substance: CITALOPRAM HYDROBROMIDE
     Dates: start: 20121220
  8. METAMIZOLE [Concomitant]
     Active Substance: METAMIZOLE
     Route: 065
  9. AZITHROBETA [Concomitant]
     Active Substance: AZITHROMYCIN
     Indication: PRODUCT USED FOR UNKNOWN INDICATION
     Dosage: 500 MG, QD
     Route: 065
     Dates: start: 20130603, end: 20130605
  10. REYATAZ [Suspect]
     Active Substance: ATAZANAVIR SULFATE
     Indication: HIV INFECTION
     Dosage: CUMULATIVE DOSE TO FIRST REACTION: 262500 MG?300 MG, QD
     Route: 048
     Dates: start: 20100101, end: 20160720
  11. SUBUTEX [Concomitant]
     Active Substance: BUPRENORPHINE HYDROCHLORIDE
     Indication: PRODUCT USED FOR UNKNOWN INDICATION
     Dosage: 4 MG, UNK
     Route: 065
  12. TELAPREVIR [Suspect]
     Active Substance: TELAPREVIR
     Indication: CHRONIC HEPATITIS C
     Dosage: 2250 MG, QD
     Route: 048
     Dates: start: 20120524, end: 20120816
  13. CITALOPRAM [Concomitant]
     Active Substance: CITALOPRAM HYDROBROMIDE
     Dosage: 20 MG, UNK
     Route: 065
  14. CITALOPRAM [Concomitant]
     Active Substance: CITALOPRAM HYDROBROMIDE
     Dosage: 40 MG, UNK
     Route: 065
  15. NORVIR [Suspect]
     Active Substance: RITONAVIR
     Route: 048
     Dates: end: 2013
  16. COPEGUS [Suspect]
     Active Substance: RIBAVIRIN
     Dosage: CUMULATIVE DOSE TO FIRST REACTION: 103473.69 MG?800 MG, QD
     Route: 048
     Dates: start: 20120803, end: 20130425
  17. ACC AKUT [Concomitant]
     Active Substance: ACETYLCYSTEINE
     Indication: PRODUCT USED FOR UNKNOWN INDICATION
     Dosage: 600 MG, UNK
     Route: 065
     Dates: start: 20130314
  18. NORVIR [Suspect]
     Active Substance: RITONAVIR
     Indication: HIV INFECTION
     Dosage: CUMULATIVE DOSE TO FIRST REACTION: 98658.76 MG?100 MG, QD
     Route: 048
     Dates: start: 20100101
  19. NORVIR [Suspect]
     Active Substance: RITONAVIR
     Route: 048
     Dates: start: 2013, end: 20160720
  20. RIBAVIRIN. [Suspect]
     Active Substance: RIBAVIRIN
     Indication: CHRONIC HEPATITIS C
     Dosage: MOST RECENT DOSE ON 02/AUG/2012
     Route: 048
     Dates: start: 20120524, end: 20120802
  21. TRUVADA [Suspect]
     Active Substance: EMTRICITABINE\TENOFOVIR DISOPROXIL FUMARATE
     Indication: HIV INFECTION
     Dosage: 200 MG, QD
     Route: 048
     Dates: start: 20100101, end: 20160720

REACTIONS (26)
  - Vertigo [Recovered/Resolved]
  - Restlessness [Recovered/Resolved]
  - Pruritus [Recovering/Resolving]
  - Taste disorder [Not Recovered/Not Resolved]
  - Pruritus [Recovering/Resolving]
  - Skin irritation [Not Recovered/Not Resolved]
  - Laboratory test abnormal [Unknown]
  - Nausea [Not Recovered/Not Resolved]
  - Oral herpes [Recovered/Resolved]
  - Dry skin [Not Recovered/Not Resolved]
  - Incorrect dosage administered [Unknown]
  - Dry skin [Not Recovered/Not Resolved]
  - Dizziness [Recovered/Resolved]
  - Headache [Recovered/Resolved]
  - Depressed mood [Not Recovered/Not Resolved]
  - Incorrect dose administered [Unknown]
  - Influenza like illness [Recovered/Resolved]
  - Nasopharyngitis [Recovered/Resolved]
  - Fatigue [Not Recovered/Not Resolved]
  - Withdrawal syndrome [Not Recovered/Not Resolved]
  - Sinusitis [Recovered/Resolved]
  - Alanine aminotransferase increased [Not Recovered/Not Resolved]
  - Drug dependence [Unknown]
  - Pruritus [Recovering/Resolving]
  - Anaemia [Not Recovered/Not Resolved]
  - Impaired healing [Recovered/Resolved]

NARRATIVE: CASE EVENT DATE: 20120524
